FAERS Safety Report 8592641-5 (Version None)
Quarter: 2012Q3

REPORT INFORMATION
  Report Type: 
  Country: None (occurrence: None)
  Receive Date: 20120814
  Receipt Date: 20120810
  Transmission Date: 20120928
  Serious: Yes (Death, Other)
  Sender: FDA-Public Use
  Company Number: US-ELI_LILLY_AND_COMPANY-US201206003226

PATIENT
  Sex: Female

DRUGS (3)
  1. CIALIS [Suspect]
     Dosage: 10 MG, UNK
  2. HYDROCODONE BITARTRATE [Concomitant]
  3. ACETAMINOPHEN [Concomitant]

REACTIONS (3)
  - CONGESTIVE CARDIOMYOPATHY [None]
  - INTENTIONAL DRUG MISUSE [None]
  - ARRHYTHMIA [None]
